FAERS Safety Report 8477512-7 (Version None)
Quarter: 2012Q2

REPORT INFORMATION
  Report Type: 
  Country: None (occurrence: None)
  Receive Date: 20120629
  Receipt Date: 20120626
  Transmission Date: 20120825
  Serious: No
  Sender: FDA-Public Use
  Company Number: PHEH2012US011794

PATIENT
  Sex: Male
  Weight: 70.295 kg

DRUGS (7)
  1. ZONISAMIDE [Concomitant]
     Indication: CONVULSION
     Dosage: 100 MG, DAILY
     Route: 048
  2. MIRALAX [Concomitant]
     Indication: CONSTIPATION
  3. TASIGNA [Suspect]
     Indication: LEUKAEMIA
     Dosage: 150 MG, QID
     Route: 048
  4. ZANTAC [Concomitant]
     Indication: DYSPEPSIA
     Dosage: 20 MG, DAILY
     Route: 048
  5. PAXIL [Concomitant]
     Indication: DEPRESSION
     Dosage: 20 MG, DAILY
  6. AMBIEN [Concomitant]
     Indication: INSOMNIA
     Dosage: 10 MG, DAILY
  7. ADVAIR DISKUS 100/50 [Concomitant]
     Indication: ASTHMA

REACTIONS (1)
  - HYPOAESTHESIA [None]
